FAERS Safety Report 10190468 (Version 1)
Quarter: 2014Q2

REPORT INFORMATION
  Report Type: Spontaneous
  Country: US (occurrence: US)
  Receive Date: 20140522
  Receipt Date: 20140522
  Transmission Date: 20141212
  Serious: No
  Sender: FDA-Public Use
  Company Number: US-SANOFI-AVENTIS-2013SA071658

PATIENT
  Age: 45 Year
  Sex: Male

DRUGS (7)
  1. OXALIPLATIN [Suspect]
     Indication: COLORECTAL CANCER
     Dosage: TAKEN FROM:BETWEEN MAY-NOVEMBER, 2012
     Route: 041
  2. OXALIPLATIN [Suspect]
     Indication: COLORECTAL CANCER
     Dosage: TAKEN FROM:BETWEEN MAY-NOVEMBER, 2012
     Route: 041
  3. 5-FU [Suspect]
     Indication: COLORECTAL CANCER
     Route: 041
  4. 5-FU [Suspect]
     Indication: COLORECTAL CANCER
     Route: 041
  5. LEUCOVORIN [Suspect]
     Indication: COLORECTAL CANCER
     Route: 041
  6. LEUCOVORIN [Suspect]
     Indication: COLORECTAL CANCER
     Route: 041
  7. AVASTIN [Suspect]
     Route: 065

REACTIONS (2)
  - Temperature intolerance [Not Recovered/Not Resolved]
  - Neuropathy peripheral [Not Recovered/Not Resolved]
